FAERS Safety Report 4574197-7 (Version None)
Quarter: 2005Q1

REPORT INFORMATION
  Report Type: 
  Country: None (occurrence: None)
  Receive Date: 20050208
  Receipt Date: 20041118
  Transmission Date: 20050727
  Serious: Yes (Death)
  Sender: FDA-Public Use
  Company Number: PHEH2004US12501

PATIENT
  Sex: Female

DRUGS (2)
  1. SANDOSTATIN LAR [Suspect]
     Indication: CARCINOID TUMOUR
     Dosage: 40 MG, QMO
     Dates: start: 20020101
  2. CHEMOTHERAPEUTICS,OTHER [Concomitant]

REACTIONS (4)
  - DISEASE PROGRESSION [None]
  - METASTATIC NEOPLASM [None]
  - NEUTROPENIA [None]
  - PNEUMONIA [None]
